FAERS Safety Report 23248978 (Version 1)
Quarter: 2023Q4

REPORT INFORMATION
  Report Type: Spontaneous
  Country: GB (occurrence: GB)
  Receive Date: 20231201
  Receipt Date: 20231201
  Transmission Date: 20240110
  Serious: Yes (Hospitalization, Other)
  Sender: FDA-Public Use
  Company Number: GB-IPCA LABORATORIES LIMITED-IPC-2023-GB-002119

PATIENT

DRUGS (4)
  1. ALLOPURINOL [Suspect]
     Active Substance: ALLOPURINOL
     Indication: Leukaemia
     Dosage: UNK
     Route: 065
  2. FOLATE SODIUM [Concomitant]
     Active Substance: FOLATE SODIUM
     Indication: Anaemia vitamin B12 deficiency
     Dosage: UNK
     Route: 048
  3. BIOTIN [Concomitant]
     Active Substance: BIOTIN
     Indication: Anaemia vitamin B12 deficiency
     Dosage: UNK
     Route: 048
  4. HYDROXYCOALBUMIN [Concomitant]
     Indication: Anaemia vitamin B12 deficiency
     Dosage: UNK
     Route: 030

REACTIONS (1)
  - Oroticaciduria [Recovered/Resolved]
